FAERS Safety Report 17039844 (Version 1)
Quarter: 2019Q4

REPORT INFORMATION
  Report Type: Other
  Country: GB (occurrence: GB)
  Receive Date: 20191116
  Receipt Date: 20191116
  Transmission Date: 20200122
  Serious: Yes (Hospitalization, Other)
  Sender: FDA-Public Use
  Company Number: GB-MACLEODS PHARMACEUTICALS US LTD-MAC2019023751

PATIENT

DRUGS (2)
  1. LAMOTRIGINE. [Concomitant]
     Active Substance: LAMOTRIGINE
     Indication: SEIZURE
     Dosage: 200 MILLIGRAM
     Route: 065
     Dates: start: 201808
  2. ARIPIPRAZOLE  15 MG [Suspect]
     Active Substance: ARIPIPRAZOLE
     Indication: BIPOLAR DISORDER
     Dosage: 15 MILLIGRAM
     Route: 048
     Dates: start: 20150401, end: 20181214

REACTIONS (5)
  - Depressed mood [Unknown]
  - Anger [Unknown]
  - Withdrawal syndrome [Unknown]
  - Seizure [Recovered/Resolved]
  - Tardive dyskinesia [Recovered/Resolved]

NARRATIVE: CASE EVENT DATE: 20180220
